FAERS Safety Report 21663493 (Version 1)
Quarter: 2022Q4

REPORT INFORMATION
  Report Type: Spontaneous
  Country: FR (occurrence: FR)
  Receive Date: 20221130
  Receipt Date: 20221130
  Transmission Date: 20230113
  Serious: Yes (Other)
  Sender: FDA-Public Use
  Company Number: FR-ABBVIE-4218756

PATIENT
  Sex: Female
  Weight: 51 kg

DRUGS (1)
  1. HUMIRA [Suspect]
     Active Substance: ADALIMUMAB
     Indication: Crohn^s disease
     Route: 058
     Dates: start: 201306

REACTIONS (6)
  - Colitis [Unknown]
  - Drug intolerance [Unknown]
  - Perforation [Unknown]
  - Abdominal pain [Unknown]
  - Drug ineffective [Unknown]
  - Abscess [Unknown]

NARRATIVE: CASE EVENT DATE: 20211201
